FAERS Safety Report 21604477 (Version 2)
Quarter: 2023Q1

REPORT INFORMATION
  Report Type: Spontaneous
  Country: US (occurrence: US)
  Receive Date: 20221116
  Receipt Date: 20230125
  Transmission Date: 20230418
  Serious: No
  Sender: FDA-Public Use
  Company Number: US-BIOGEN-2022BI01169359

PATIENT
  Sex: Male

DRUGS (4)
  1. TYSABRI [Suspect]
     Active Substance: NATALIZUMAB
     Indication: Multiple sclerosis
     Route: 050
     Dates: start: 20140530, end: 20220809
  2. ADVIL [Concomitant]
     Active Substance: IBUPROFEN
     Route: 050
  3. ADVIL MIGRAI [Concomitant]
     Route: 050
  4. IBUPROFEN [Concomitant]
     Active Substance: IBUPROFEN
     Route: 050

REACTIONS (1)
  - Coronavirus pneumonia [Unknown]

NARRATIVE: CASE EVENT DATE: 20190101
